FAERS Safety Report 6713025-8 (Version None)
Quarter: 2010Q2

REPORT INFORMATION
  Report Type: 
  Country: None (occurrence: None)
  Receive Date: 20100505
  Receipt Date: 20100505
  Transmission Date: 20101027
  Serious: Yes (Death, Life-Threatening, Hospitalization, Disabling)
  Sender: FDA-Public Use
  Company Number: None

PATIENT
  Sex: Female
  Weight: 48.0813 kg

DRUGS (2)
  1. CARBOPLATIN [Suspect]
     Indication: ADENOCARCINOMA
     Dosage: 360 MG D1 Q 21 DAYS IV
     Route: 042
     Dates: start: 20100414, end: 20100414
  2. ETOPOSIDE [Suspect]
     Indication: ADENOCARCINOMA
     Dosage: 114 MG D1, 2, 3 Q 21 DAYS I.V.
     Route: 042
     Dates: start: 20100414, end: 20100416

REACTIONS (11)
  - BRAIN STEM INFARCTION [None]
  - CEREBELLAR EMBOLISM [None]
  - CEREBRAL HAEMORRHAGE [None]
  - CEREBRAL INFARCTION [None]
  - COMA [None]
  - HAEMOGLOBIN DECREASED [None]
  - MENTAL STATUS CHANGES [None]
  - NEUTROPENIA [None]
  - PLATELET COUNT DECREASED [None]
  - SPEECH DISORDER [None]
  - SUBARACHNOID HAEMORRHAGE [None]
